FAERS Safety Report 12235342 (Version 1)
Quarter: 2016Q2

REPORT INFORMATION
  Report Type: Spontaneous
  Country: CA (occurrence: CA)
  Receive Date: 20160404
  Receipt Date: 20160404
  Transmission Date: 20160815
  Serious: Yes (Hospitalization)
  Sender: FDA-Public Use
  Company Number: CA-BAXTER-2016BAX016556

PATIENT
  Age: 71 Year
  Sex: Female

DRUGS (36)
  1. NITROGLYCERIN IN DEXTROSE [Suspect]
     Active Substance: NITROGLYCERIN
     Route: 065
  2. ACEBUTOLOL [Suspect]
     Active Substance: ACEBUTOLOL
     Route: 065
  3. CYCLOBENZAPRINE [Suspect]
     Active Substance: CYCLOBENZAPRINE
     Indication: FIBROMYALGIA
     Route: 065
  4. BISACODYL. [Concomitant]
     Active Substance: BISACODYL
     Indication: CONSTIPATION
     Route: 065
  5. LEVOTHYROXINE. [Concomitant]
     Active Substance: LEVOTHYROXINE
     Indication: THYROID DISORDER
     Route: 065
  6. OMEPRAZOLE. [Concomitant]
     Active Substance: OMEPRAZOLE
     Indication: DUODENAL ULCER
     Route: 065
  7. TIOTROPIUM [Concomitant]
     Active Substance: TIOTROPIUM
     Indication: PRODUCT USED FOR UNKNOWN INDICATION
     Route: 065
  8. MORPHINE [Suspect]
     Active Substance: MORPHINE
     Indication: FIBROMYALGIA
     Route: 065
  9. ACETAMINOPHEN. [Concomitant]
     Active Substance: ACETAMINOPHEN
     Indication: FIBROMYALGIA
     Route: 065
  10. GLYCEROL [Concomitant]
     Active Substance: GLYCERIN
     Indication: CONSTIPATION
     Route: 065
  11. LEVOFLOXACIN. [Concomitant]
     Active Substance: LEVOFLOXACIN
     Indication: URINARY TRACT INFECTION
     Route: 065
  12. ROSUVASTATIN. [Concomitant]
     Active Substance: ROSUVASTATIN
     Indication: CEREBROVASCULAR ACCIDENT
     Route: 065
  13. CARBAMAZEPINE. [Suspect]
     Active Substance: CARBAMAZEPINE
     Indication: SEIZURE
     Route: 065
  14. FUROSEMIDE. [Suspect]
     Active Substance: FUROSEMIDE
     Route: 065
  15. QUINAPRIL. [Suspect]
     Active Substance: QUINAPRIL
     Indication: CORONARY ARTERY DISEASE
     Route: 065
  16. POTASSIUM SORBATE [Concomitant]
     Active Substance: POTASSIUM SORBATE
     Indication: CONSTIPATION
     Route: 065
  17. SODIUM BENZOATE [Concomitant]
     Active Substance: SODIUM BENZOATE
     Indication: CONSTIPATION
     Route: 065
  18. GALANTAMINE. [Concomitant]
     Active Substance: GALANTAMINE
     Indication: DEMENTIA
     Route: 065
  19. GLUCOSAMINE [Concomitant]
     Active Substance: GLUCOSAMINE
     Indication: ARTHRITIS
     Route: 065
  20. SALBUTAMOL [Concomitant]
     Active Substance: ALBUTEROL
     Indication: PRODUCT USED FOR UNKNOWN INDICATION
     Route: 065
  21. LACTULOSE. [Concomitant]
     Active Substance: LACTULOSE
     Indication: CONSTIPATION
     Route: 065
  22. CARBAMAZEPINE. [Suspect]
     Active Substance: CARBAMAZEPINE
     Route: 065
  23. AMITRIPTYLINE [Suspect]
     Active Substance: AMITRIPTYLINE
     Indication: INSOMNIA
     Route: 065
  24. CYCLOBENZAPRINE [Suspect]
     Active Substance: CYCLOBENZAPRINE
     Route: 065
  25. DILTIAZEM [Suspect]
     Active Substance: DILTIAZEM
     Indication: CORONARY ARTERY DISEASE
     Route: 065
  26. MAGNESIUM HYDROXIDE. [Concomitant]
     Active Substance: MAGNESIUM HYDROXIDE
     Indication: CONSTIPATION
     Route: 065
  27. VACCINIUM MACROCARPON/VITAMIN C [Concomitant]
     Indication: BLADDER ABLATION
     Route: 065
  28. AMLODIPINE [Suspect]
     Active Substance: AMLODIPINE BESYLATE
     Indication: CORONARY ARTERY DISEASE
     Route: 065
  29. DIPYRIDAMOLE. [Concomitant]
     Active Substance: DIPYRIDAMOLE
     Indication: CEREBROVASCULAR ACCIDENT
     Route: 065
  30. DIPYRIDAMOLE. [Concomitant]
     Active Substance: DIPYRIDAMOLE
     Route: 065
  31. NITROGLYCERIN IN DEXTROSE [Suspect]
     Active Substance: NITROGLYCERIN
     Indication: CORONARY ARTERY DISEASE
     Route: 065
  32. ACEBUTOLOL [Suspect]
     Active Substance: ACEBUTOLOL
     Indication: CORONARY ARTERY DISEASE
     Route: 065
  33. FUROSEMIDE. [Suspect]
     Active Substance: FUROSEMIDE
     Indication: OEDEMA
     Route: 065
  34. FUROSEMIDE. [Suspect]
     Active Substance: FUROSEMIDE
     Route: 065
  35. OXAZEPAM. [Suspect]
     Active Substance: OXAZEPAM
     Indication: INSOMNIA
     Route: 065
  36. PHOSPHORIC ACID [Concomitant]
     Active Substance: PHOSPHORIC ACID
     Indication: CONSTIPATION
     Route: 065

REACTIONS (2)
  - Orthostatic hypotension [Recovered/Resolved]
  - Bladder disorder [Recovered/Resolved]
